FAERS Safety Report 17359939 (Version 1)
Quarter: 2020Q1

REPORT INFORMATION
  Report Type: Spontaneous
  Country: US (occurrence: US)
  Receive Date: 20200203
  Receipt Date: 20200203
  Transmission Date: 20200409
  Serious: No
  Sender: FDA-Public Use
  Company Number: US-BRISTOL-MYERS SQUIBB COMPANY-BMS-2020-008664

PATIENT
  Sex: Female
  Weight: 113.39 kg

DRUGS (1)
  1. ELIQUIS [Suspect]
     Active Substance: APIXABAN
     Indication: CEREBROVASCULAR ACCIDENT PROPHYLAXIS
     Dosage: 2.5 MILLIGRAM, BID
     Route: 048
     Dates: start: 20190420

REACTIONS (5)
  - Back pain [Not Recovered/Not Resolved]
  - Underdose [Unknown]
  - Hypoaesthesia [Unknown]
  - Chromaturia [Unknown]
  - Paraesthesia [Unknown]
